FAERS Safety Report 4472788-5 (Version None)
Quarter: 2004Q4

REPORT INFORMATION
  Report Type: 
  Country: None (occurrence: None)
  Receive Date: 20041012
  Receipt Date: 20041012
  Transmission Date: 20050328
  Serious: Yes (Life-Threatening, Other)
  Sender: FDA-Public Use
  Company Number: None

PATIENT
  Age: 40 Year
  Sex: Male
  Weight: 127.0072 kg

DRUGS (1)
  1. VIOXX [Suspect]
     Dosage: 1 TABLET 2 A DAY ORAL
     Route: 048

REACTIONS (1)
  - CHEST PAIN [None]
